FAERS Safety Report 6247915-X (Version None)
Quarter: 2009Q2

REPORT INFORMATION
  Report Type: 
  Country: None (occurrence: None)
  Receive Date: 20090626
  Receipt Date: 20090615
  Transmission Date: 20091009
  Serious: Yes (Hospitalization)
  Sender: FDA-Public Use
  Company Number: PHHY2008MX30825

PATIENT
  Age: 79 Year
  Sex: Female

DRUGS (4)
  1. DIOVAN HCT [Suspect]
     Indication: HYPERTENSION
     Dosage: 1 TABLET (160/12.5 MG) PER DAY
     Route: 048
     Dates: start: 19990101
  2. DIOVAN HCT [Suspect]
     Dosage: 0.5 TABLET (160/12.5 MG) PER DAY
     Route: 048
  3. DIOVAN HCT [Suspect]
     Dosage: 1 TABLET (160/12.5 MG) PER DAY
     Route: 048
     Dates: start: 20090101
  4. LEVOTHYROXINE SODIUM [Concomitant]
     Indication: HYPOTHYROIDISM
     Dosage: UNK
     Dates: start: 20040101

REACTIONS (6)
  - BLOOD PRESSURE FLUCTUATION [None]
  - DIARRHOEA [None]
  - HELICOBACTER INFECTION [None]
  - HYPOTENSION [None]
  - SURGERY [None]
  - THROMBOSIS [None]
